FAERS Safety Report 9531431 (Version 1)
Quarter: 2013Q2

REPORT INFORMATION
  Report Type: Spontaneous
  Country: US (occurrence: None)
  Receive Date: 20130503
  Receipt Date: 20130503
  Transmission Date: 20140414
  Serious: No
  Sender: FDA-Public Use
  Company Number: 1000043558

PATIENT
  Age: 82 Year
  Sex: Male

DRUGS (5)
  1. DALIRESP (ROFLUMILAST) (500 MICROGRAM, TABLETS) [Suspect]
     Indication: EMPHYSEMA
     Dosage: 500 MCG, 1 IN 1 D
     Route: 048
     Dates: start: 20130314
  2. SPIRIVA (TIOTROPIUM BROMIDE) [Concomitant]
  3. SYMICORT (BUDESONIDE W/ FORMOTEROL FUMARATE) [Concomitant]
  4. ALBUTEROL [Concomitant]
  5. ASPIRIN (ACETYLSALICYLIC ACID) [Concomitant]

REACTIONS (4)
  - Insomnia [None]
  - Epistaxis [None]
  - Nausea [None]
  - Asthenia [None]
